FAERS Safety Report 22326038 (Version 4)
Quarter: 2023Q2

REPORT INFORMATION
  Report Type: Spontaneous
  Country: US (occurrence: US)
  Receive Date: 20230516
  Receipt Date: 20230621
  Transmission Date: 20230721
  Serious: No
  Sender: FDA-Public Use
  Company Number: US-BAYER-2023A062298

PATIENT
  Age: 29 Year
  Sex: Female
  Weight: 100.68 kg

DRUGS (3)
  1. MIRENA [Suspect]
     Active Substance: LEVONORGESTREL
     Indication: Contraception
     Dosage: 20?G/DAY
     Route: 015
     Dates: start: 20220111, end: 20230422
  2. CYTOTEC [Concomitant]
     Active Substance: MISOPROSTOL
     Dosage: 1 DF, ONCE
     Route: 067
     Dates: start: 20220110
  3. ZOLOFT [Concomitant]
     Active Substance: SERTRALINE HYDROCHLORIDE
     Dosage: 50 MG, QD
     Route: 048

REACTIONS (4)
  - Vaginal haemorrhage [None]
  - Device expulsion [Recovered/Resolved]
  - Pelvic pain [None]
  - Abdominal pain lower [None]

NARRATIVE: CASE EVENT DATE: 20230415
